FAERS Safety Report 21791498 (Version 2)
Quarter: 2022Q4

REPORT INFORMATION
  Report Type: Spontaneous
  Country: IN (occurrence: IN)
  Receive Date: 20221228
  Receipt Date: 20221230
  Transmission Date: 20230113
  Serious: Yes (Hospitalization, Other)
  Sender: FDA-Public Use
  Company Number: IN-SUN PHARMACEUTICAL INDUSTRIES LTD-2020R1-275173

PATIENT
  Age: 38 Year
  Sex: Male
  Weight: 60.998 kg

DRUGS (7)
  1. SILDENAFIL [Suspect]
     Active Substance: SILDENAFIL
     Indication: Euphoric mood
     Dosage: 1 TO 2 TABLETS, DAILY
     Route: 048
  2. SILDENAFIL [Suspect]
     Active Substance: SILDENAFIL
     Indication: Feeling of relaxation
     Dosage: 10 TO 12 TABLETS, DAILY IN 3 TO 4 DIVIDED DOSES
     Route: 048
  3. SILDENAFIL [Suspect]
     Active Substance: SILDENAFIL
     Indication: Libido increased
     Dosage: 2000MG IN 3 TO 4 DIVIDED DOSES
     Route: 048
  4. ALPRAZOLAM [Suspect]
     Active Substance: ALPRAZOLAM
     Indication: Euphoric mood
     Dosage: 40 TO 50 TABLETS (20-25 MG) IN DIVIDED DOSES
     Route: 065
  5. ALPRAZOLAM [Suspect]
     Active Substance: ALPRAZOLAM
     Indication: Feeling of relaxation
  6. TRAMADOL [Suspect]
     Active Substance: TRAMADOL
     Indication: Euphoric mood
     Dosage: 25 TO 30 TABLETS (1250-1500 MG) IN DIVIDED DOSES
     Route: 065
  7. TRAMADOL [Suspect]
     Active Substance: TRAMADOL
     Indication: Feeling of relaxation

REACTIONS (4)
  - Intentional overdose [Unknown]
  - Drug use disorder [Recovering/Resolving]
  - Vision blurred [Recovering/Resolving]
  - Headache [Recovering/Resolving]
